FAERS Safety Report 21322979 (Version 2)
Quarter: 2022Q4

REPORT INFORMATION
  Report Type: Spontaneous
  Country: US (occurrence: US)
  Receive Date: 20220912
  Receipt Date: 20221031
  Transmission Date: 20230113
  Serious: Yes (Hospitalization, Other)
  Sender: FDA-Public Use
  Company Number: US-PFIZER INC-PV202200054479

PATIENT
  Age: 13 Year
  Sex: Female

DRUGS (10)
  1. PENTOSTATIN [Suspect]
     Active Substance: PENTOSTATIN
     Indication: Neutropenia
     Dosage: 4 MG/M2 (Q2 WEEKS)
     Route: 042
  2. PENTOSTATIN [Suspect]
     Active Substance: PENTOSTATIN
     Indication: Large granular lymphocytosis
  3. CYCLOPHOSPHAMIDE [Suspect]
     Active Substance: CYCLOPHOSPHAMIDE
     Indication: Neutropenia
     Dosage: 100 MG, DAILY
     Route: 048
  4. CYCLOPHOSPHAMIDE [Suspect]
     Active Substance: CYCLOPHOSPHAMIDE
     Indication: Large granular lymphocytosis
     Dosage: 50 MG, DAILY
     Route: 048
  5. CYCLOPHOSPHAMIDE [Suspect]
     Active Substance: CYCLOPHOSPHAMIDE
     Dosage: 25 MG, DAILY
     Route: 048
  6. CYCLOSPORINE [Suspect]
     Active Substance: CYCLOSPORINE
     Indication: Neutropenia
     Dosage: 50 MG, 2X/DAY
     Route: 048
  7. CYCLOSPORINE [Suspect]
     Active Substance: CYCLOSPORINE
     Indication: Large granular lymphocytosis
     Dosage: 75 MG, 2X/DAY, WITHOUT IMPROVED EFFCACY
     Route: 048
  8. ALEMTUZUMAB [Suspect]
     Active Substance: ALEMTUZUMAB
     Indication: Neutropenia
     Dosage: 10 MG, DAILY (HAVING CONFIRMED CD52 EXPRESSION BY FLOW CYTOMETRY)
     Route: 058
  9. ALEMTUZUMAB [Suspect]
     Active Substance: ALEMTUZUMAB
     Indication: Large granular lymphocytosis
     Dosage: UNK (BOOSTER DOSE 1)
  10. ALEMTUZUMAB [Suspect]
     Active Substance: ALEMTUZUMAB
     Dosage: UNK (BOOSTER DOSE 2)

REACTIONS (6)
  - Mucosal inflammation [Unknown]
  - Decreased appetite [Unknown]
  - Nausea [Unknown]
  - Neutropenia [Recovering/Resolving]
  - Disease progression [Recovering/Resolving]
  - Off label use [Unknown]
